FAERS Safety Report 4366428-3 (Version None)
Quarter: 2004Q2

REPORT INFORMATION
  Report Type: 
  Country: None (occurrence: None)
  Receive Date: 20040527
  Receipt Date: 20040318
  Transmission Date: 20050107
  Serious: Yes (Other)
  Sender: FDA-Public Use
  Company Number: US-BRISTOL-MYERS SQUIBB COMPANY-12537817

PATIENT

DRUGS (1)
  1. ERBITUX [Suspect]
     Dosage: 100 MG RECEIVED OF A 900 MG PLANNED DOSE
     Route: 042

REACTIONS (1)
  - INFUSION RELATED REACTION [None]
